FAERS Safety Report 4636970-6 (Version None)
Quarter: 2005Q2

REPORT INFORMATION
  Report Type: 
  Country: None (occurrence: None)
  Receive Date: 20050414
  Receipt Date: 20050411
  Transmission Date: 20051028
  Serious: Yes (Hospitalization)
  Sender: FDA-Public Use
  Company Number: US-SHR-03-011422

PATIENT
  Age: 32 Year
  Sex: Female
  Weight: 117.9 kg

DRUGS (4)
  1. BETASERON [Suspect]
     Indication: SECONDARY PROGRESSIVE MULTIPLE SCLEROSIS
     Dosage: 8MIU, EVERY 2D; SUBCUTANEOUS
     Route: 058
     Dates: start: 20030221
  2. BACLOFEN [Concomitant]
  3. CORTICOSTEROIDS [Concomitant]
  4. TRAZODONE HCL [Concomitant]

REACTIONS (6)
  - CARDIAC DISORDER [None]
  - DYSPHAGIA [None]
  - MYOCARDIAL INFARCTION [None]
  - SLEEP APNOEA SYNDROME [None]
  - SPEECH DISORDER [None]
  - VENTRICULAR DYSFUNCTION [None]
